FAERS Safety Report 8250465-2 (Version None)
Quarter: 2012Q2

REPORT INFORMATION
  Report Type: 
  Country: None (occurrence: None)
  Receive Date: 20120402
  Receipt Date: 20120402
  Transmission Date: 20120825
  Serious: No
  Sender: FDA-Public Use
  Company Number: None

PATIENT
  Sex: Female
  Weight: 88.45 kg

DRUGS (1)
  1. NEXIUM [Suspect]
     Indication: GASTROOESOPHAGEAL REFLUX DISEASE
     Dosage: 1 CAP.
     Route: 048
     Dates: start: 20040818, end: 20100907

REACTIONS (2)
  - INTERVERTEBRAL DISC PROTRUSION [None]
  - PNEUMONIA [None]
